FAERS Safety Report 25546734 (Version 6)
Quarter: 2025Q4

REPORT INFORMATION
  Report Type: Spontaneous
  Country: JP (occurrence: JP)
  Receive Date: 20250714
  Receipt Date: 20251226
  Transmission Date: 20260118
  Serious: Yes (Hospitalization, Other)
  Sender: AMGEN
  Company Number: JP-AMGEN-JPNSP2025134258

PATIENT
  Age: 69 Year
  Sex: Female
  Weight: 51.15 kg

DRUGS (8)
  1. TEPEZZA [Suspect]
     Active Substance: TEPROTUMUMAB-TRBW
     Indication: Endocrine ophthalmopathy
     Dosage: 10 MILLIGRAM/KILOGRAM, Q3WK (INITIAL DOSE), INTRAVENOUS DRIP INFUSION
     Route: 040
     Dates: start: 20250408
  2. TEPEZZA [Suspect]
     Active Substance: TEPROTUMUMAB-TRBW
     Dosage: 20 MILLIGRAM/KILOGRAM, Q3WK (SECOND AND SUBSEQUENT DOSES), INTRAVENOUS DRIP INFUSION
     Route: 040
     Dates: start: 20250429
  3. TEPEZZA [Suspect]
     Active Substance: TEPROTUMUMAB-TRBW
     Dosage: 20 MILLIGRAM/KILOGRAM, Q3WK (FOURTH DOSE), INTRAVENOUS DRIP INFUSION
     Route: 040
     Dates: start: 2025
  4. TEPEZZA [Suspect]
     Active Substance: TEPROTUMUMAB-TRBW
     Dosage: 20 MILLIGRAM/KILOGRAM, Q3WK (FIFTH DOSE), INTRAVENOUS DRIP INFUSION
     Route: 040
     Dates: start: 2025
  5. TEPEZZA [Suspect]
     Active Substance: TEPROTUMUMAB-TRBW
     Dosage: 20 MILLIGRAM/KILOGRAM, Q3WK (SIXTH DOSE), INTRAVENOUS DRIP INFUSION
     Route: 040
     Dates: start: 2025
  6. TEPEZZA [Suspect]
     Active Substance: TEPROTUMUMAB-TRBW
     Dosage: 20 MILLIGRAM/KILOGRAM, Q3WK (SEVENTH DOSE), INTRAVENOUS DRIP INFUSION
     Route: 040
     Dates: start: 2025
  7. TEPEZZA [Suspect]
     Active Substance: TEPROTUMUMAB-TRBW
     Dosage: 20 MILLIGRAM/KILOGRAM, Q3WK (EIGHTH DOSE), INTRAVENOUS DRIP INFUSION
     Route: 040
     Dates: start: 2025
  8. INSULIN NOS [Concomitant]
     Active Substance: INSULIN NOS
     Indication: Type 1 diabetes mellitus
     Dosage: UNK
     Route: 065

REACTIONS (8)
  - Deafness unilateral [Not Recovered/Not Resolved]
  - Pneumonia aspiration [Unknown]
  - Graves^ disease [Recovering/Resolving]
  - Physical deconditioning [Recovered/Resolved]
  - Myxoedema [Unknown]
  - Hyperglycaemia [Recovering/Resolving]
  - Decreased appetite [Recovered/Resolved]
  - Pleural effusion [Unknown]

NARRATIVE: CASE EVENT DATE: 20250101
